FAERS Safety Report 4766727-7 (Version None)
Quarter: 2005Q3

REPORT INFORMATION
  Report Type: 
  Country: None (occurrence: None)
  Receive Date: 20050912
  Receipt Date: 20050309
  Transmission Date: 20060218
  Serious: Yes (Hospitalization, Other)
  Sender: FDA-Public Use
  Company Number: US-MERCK-0503USA01778

PATIENT
  Age: 61 Year
  Sex: Male
  Weight: 91 kg

DRUGS (10)
  1. VIOXX [Suspect]
     Indication: GOUT
     Route: 048
     Dates: start: 19990101, end: 20041001
  2. IBUPROFEN [Concomitant]
     Indication: GOUT
     Route: 065
     Dates: start: 20000101, end: 20050501
  3. GLUCOTROL [Concomitant]
     Indication: DIABETES MELLITUS
     Route: 065
  4. AVANDIA [Concomitant]
     Indication: DIABETES MELLITUS
     Route: 065
  5. ZOLOFT [Concomitant]
     Indication: ANXIETY
     Route: 065
  6. NORVASC [Concomitant]
     Route: 065
  7. ECOTRIN [Concomitant]
     Route: 065
     Dates: start: 20030101
  8. MAGNESIUM OXIDE [Concomitant]
     Route: 065
  9. DITROPAN [Concomitant]
     Indication: BLADDER DISORDER
     Route: 065
  10. BENICAR [Concomitant]
     Route: 065

REACTIONS (8)
  - ANGIOPATHY [None]
  - ASTHENIA [None]
  - BLOOD CHOLESTEROL INCREASED [None]
  - EATING DISORDER [None]
  - HAEMATOCHEZIA [None]
  - HYPERTENSION [None]
  - MYOCARDIAL INFARCTION [None]
  - OESOPHAGEAL DISORDER [None]
